FAERS Safety Report 21260422 (Version 3)
Quarter: 2022Q3

REPORT INFORMATION
  Report Type: Spontaneous
  Country: ES (occurrence: ES)
  Receive Date: 20220826
  Receipt Date: 20220915
  Transmission Date: 20221026
  Serious: Yes (Hospitalization, Other)
  Sender: FDA-Public Use
  Company Number: ES-BEIGENE AUS PTY LTD-BGN-2022-008250

PATIENT
  Age: 37 Year
  Sex: Male
  Weight: 58 kg

DRUGS (4)
  1. AZACITIDINE [Suspect]
     Active Substance: AZACITIDINE
     Indication: Acute myeloid leukaemia
     Dosage: 128MG, QD
     Route: 042
     Dates: start: 20220602
  2. AZACITIDINE [Suspect]
     Active Substance: AZACITIDINE
     Dosage: 124MG,QD
     Route: 042
     Dates: start: 20220712, end: 20220712
  3. BGB-11417 [Suspect]
     Active Substance: BGB-11417
     Indication: Acute myeloid leukaemia
     Dosage: 20MG, QD
     Route: 048
     Dates: start: 20220602
  4. BGB-11417 [Suspect]
     Active Substance: BGB-11417
     Dosage: 160MG,QD
     Route: 048
     Dates: start: 20220704, end: 20220713

REACTIONS (1)
  - Enterocolitis infectious [Recovered/Resolved]

NARRATIVE: CASE EVENT DATE: 20220808
